FAERS Safety Report 12604807 (Version 4)
Quarter: 2017Q1

REPORT INFORMATION
  Report Type: Report from Study
  Country: US (occurrence: US)
  Receive Date: 20160728
  Receipt Date: 20170227
  Transmission Date: 20170428
  Serious: Yes (Death, Hospitalization)
  Sender: FDA-Public Use
  Company Number: US-ACTELION-A-NJ2016-139887

PATIENT
  Age: 85 Year
  Sex: Male

DRUGS (7)
  1. METOLAZONE. [Concomitant]
     Active Substance: METOLAZONE
  2. POTASSIUM [Concomitant]
     Active Substance: POTASSIUM
  3. SPIRONOLACTONE. [Concomitant]
     Active Substance: SPIRONOLACTONE
  4. TRACLEER [Suspect]
     Active Substance: BOSENTAN
     Indication: PULMONARY HYPERTENSION
     Dosage: 125 MG, BID
     Route: 048
     Dates: start: 20100716, end: 20170114
  5. WARFARIN [Concomitant]
     Active Substance: WARFARIN
  6. PEPCID [Concomitant]
     Active Substance: FAMOTIDINE
  7. BUMEX [Concomitant]
     Active Substance: BUMETANIDE

REACTIONS (13)
  - Liver disorder [Unknown]
  - Hypersomnia [Unknown]
  - Fall [Unknown]
  - Renal disorder [Not Recovered/Not Resolved]
  - Swelling [Unknown]
  - Blood calcium increased [Unknown]
  - Cardiac disorder [Not Recovered/Not Resolved]
  - Fluid retention [Unknown]
  - Asthenia [Not Recovered/Not Resolved]
  - Condition aggravated [Not Recovered/Not Resolved]
  - Blood potassium increased [Unknown]
  - Death [Fatal]
  - Thrombocytopenia [Unknown]

NARRATIVE: CASE EVENT DATE: 20170112
